FAERS Safety Report 6487280-6 (Version None)
Quarter: 2009Q4

REPORT INFORMATION
  Report Type: 
  Country: None (occurrence: None)
  Receive Date: 20091210
  Receipt Date: 20090811
  Transmission Date: 20100525
  Serious: No
  Sender: FDA-Public Use
  Company Number: US-AMGEN-KDL359806

PATIENT
  Sex: Female

DRUGS (2)
  1. ENBREL [Suspect]
     Indication: PSORIATIC ARTHROPATHY
     Route: 058
     Dates: start: 20061111
  2. ENBREL [Suspect]
     Indication: PSORIASIS

REACTIONS (7)
  - BACK PAIN [None]
  - DRUG EFFECT DECREASED [None]
  - LYMPHADENOPATHY [None]
  - NECK PAIN [None]
  - PAIN IN EXTREMITY [None]
  - PSORIASIS [None]
  - PSORIATIC ARTHROPATHY [None]
